FAERS Safety Report 9273246 (Version 1)
Quarter: 2013Q2

REPORT INFORMATION
  Report Type: Spontaneous
  Country: US (occurrence: US)
  Receive Date: 20130506
  Receipt Date: 20130506
  Transmission Date: 20140414
  Serious: No
  Sender: FDA-Public Use
  Company Number: US-AMGEN-USASP2013024418

PATIENT
  Age: 77 Year
  Sex: Female
  Weight: 87.98 kg

DRUGS (1)
  1. ENBREL [Suspect]
     Indication: INTERSTITIAL LUNG DISEASE
     Dosage: UNK

REACTIONS (1)
  - Drug ineffective [Unknown]
